FAERS Safety Report 20701298 (Version 1)
Quarter: 2022Q2

REPORT INFORMATION
  Report Type: Spontaneous
  Country: NL (occurrence: NL)
  Receive Date: 20220412
  Receipt Date: 20220412
  Transmission Date: 20220720
  Serious: Yes (Hospitalization)
  Sender: FDA-Public Use
  Company Number: None

PATIENT
  Age: 46 Year
  Sex: Male
  Weight: 76 kg

DRUGS (5)
  1. PIOGLITAZONE [Suspect]
     Active Substance: PIOGLITAZONE
     Indication: Diabetes mellitus
     Dosage: 1 DOSAGE FORMS DAILY;  BRAND NAME NOT SPECIFIED
     Dates: start: 20220308, end: 20220316
  2. METFORMIN HYDROCHLORIDE [Concomitant]
     Active Substance: METFORMIN HYDROCHLORIDE
     Dosage: THERAPY START DATE AND END DATE : ASKU, BRAND NAME NOT SPECIFIED
  3. PYRIDOXINE HYDROCHLORIDE [Concomitant]
     Active Substance: PYRIDOXINE HYDROCHLORIDE
     Dosage: THERAPY START DATE AND END DATE : ASKU, BRAND NAME NOT SPECIFIED
  4. ISONIAZID\RIFAMPIN [Concomitant]
     Active Substance: ISONIAZID\RIFAMPIN
     Dosage: THERAPY START DATE AND END DATE : ASKU, RIFAMPICIN/ISONIAZIDE DRAGEE 300/150MG / RIFINAH TABLET FILM
  5. INSULINE ASPART [Concomitant]
     Dosage: INSULINE ASPART INJVLST 100E/ML / BRAND NAME NOT SPECIFIED, THERAPY START DATE AND END DATE : ASKU

REACTIONS (2)
  - Inappropriate antidiuretic hormone secretion [Recovering/Resolving]
  - Hyponatraemia [Recovering/Resolving]

NARRATIVE: CASE EVENT DATE: 20220315
